FAERS Safety Report 9246823 (Version 1)
Quarter: 2013Q2

REPORT INFORMATION
  Report Type: Spontaneous
  Country: US (occurrence: US)
  Receive Date: 20130422
  Receipt Date: 20130422
  Transmission Date: 20140414
  Serious: Yes (Other)
  Sender: FDA-Public Use
  Company Number: PHEH2013US008893

PATIENT
  Sex: Male
  Weight: 56 kg

DRUGS (1)
  1. RITALIN [Suspect]
     Indication: NARCOLEPSY
     Dosage: 1 DF, DAILY

REACTIONS (3)
  - Cardiac failure [Unknown]
  - Blood pressure increased [Unknown]
  - Weight decreased [Unknown]
